FAERS Safety Report 10444901 (Version 4)
Quarter: 2015Q1

REPORT INFORMATION
  Report Type: Spontaneous
  Country: IT (occurrence: IT)
  Receive Date: 20140910
  Receipt Date: 20150113
  Transmission Date: 20150720
  Serious: Yes (Hospitalization)
  Sender: FDA-Public Use
  Company Number: IT-TEVA-506703ISR

PATIENT
  Age: 73 Year
  Sex: Male

DRUGS (5)
  1. TRIATEC - 2,5 MG COMPRESSE [Concomitant]
     Indication: PRODUCT USED FOR UNKNOWN INDICATION
  2. CONGESCOR - 28 COMPRESSE DA 2.5 MG [Concomitant]
     Indication: PRODUCT USED FOR UNKNOWN INDICATION
  3. COUMADIN [Concomitant]
     Active Substance: WARFARIN SODIUM
     Indication: PRODUCT USED FOR UNKNOWN INDICATION
     Dosage: 1 DF
     Route: 048
  4. TORVAST 20 - 30 COMPRESSE 20 MG [Concomitant]
     Indication: PRODUCT USED FOR UNKNOWN INDICATION
  5. LEVOFLOXACIN. [Suspect]
     Active Substance: LEVOFLOXACIN
     Indication: LOBAR PNEUMONIA
     Dosage: 500 MG CYCLICAL
     Route: 048
     Dates: start: 20140606, end: 20140611

REACTIONS (3)
  - Trismus [Recovering/Resolving]
  - Seizure [Recovering/Resolving]
  - Loss of consciousness [Recovering/Resolving]

NARRATIVE: CASE EVENT DATE: 20140611
